FAERS Safety Report 6703954-3 (Version None)
Quarter: 2010Q2

REPORT INFORMATION
  Report Type: 
  Country: None (occurrence: None)
  Receive Date: 20100430
  Receipt Date: 20100421
  Transmission Date: 20101027
  Serious: Yes (Other)
  Sender: FDA-Public Use
  Company Number: US-PFIZER INC-2010026384

PATIENT
  Sex: Female
  Weight: 73 kg

DRUGS (11)
  1. LIPITOR [Suspect]
     Indication: HYPERLIPIDAEMIA
     Dosage: 40 MG, UNK
     Route: 048
     Dates: start: 20070401, end: 20071106
  2. LIPITOR [Suspect]
     Dosage: 20 MG, UNK
     Route: 048
     Dates: start: 20031212, end: 20070401
  3. CALCIUM CITRATE [Concomitant]
     Dosage: 950 MG, AS DIRECTED
  4. CARAFATE [Concomitant]
     Dosage: 1 G, BEFORE MEALS
     Route: 048
  5. CENTRUM SILVER [Concomitant]
     Dosage: AS DIRECTED
  6. ELOCON [Concomitant]
     Dosage: 1 %, 2X/DAY
  7. FISH OIL [Concomitant]
     Dosage: AS DIRECTED
  8. FLONASE [Concomitant]
     Dosage: 2 SPRAYS IN EACH NOSTRIL ONCE DAILY
  9. FOSAMAX [Concomitant]
     Dosage: 70 MG, WEEKLY
     Route: 048
  10. HYTONE [Concomitant]
     Dosage: 2.5 %, 3X/DAY
  11. PROTONIX [Concomitant]
     Dosage: 40 MG, 1X/DAY
     Route: 048

REACTIONS (6)
  - DRUG HYPERSENSITIVITY [None]
  - HOT FLUSH [None]
  - LIVER FUNCTION TEST ABNORMAL [None]
  - MUSCLE DISORDER [None]
  - MUSCULOSKELETAL PAIN [None]
  - SKIN LESION [None]
